FAERS Safety Report 13648780 (Version 1)
Quarter: 2017Q2

REPORT INFORMATION
  Report Type: Spontaneous
  Country: US (occurrence: US)
  Receive Date: 20170613
  Receipt Date: 20170613
  Transmission Date: 20170830
  Serious: No
  Sender: FDA-Public Use
  Company Number: US-GILEAD-2017-0277167

PATIENT
  Sex: Female

DRUGS (4)
  1. TRUVADA [Suspect]
     Active Substance: EMTRICITABINE\TENOFOVIR DISOPROXIL FUMARATE
     Indication: PRODUCT USED FOR UNKNOWN INDICATION
     Dosage: UNK
     Route: 065
     Dates: start: 2012
  2. REYATAZ [Concomitant]
     Active Substance: ATAZANAVIR SULFATE
     Dosage: UNK
  3. NORVIR [Concomitant]
     Active Substance: RITONAVIR
     Dosage: UNK
  4. EPZICOM [Concomitant]
     Active Substance: ABACAVIR SULFATE\LAMIVUDINE
     Dosage: UNK

REACTIONS (2)
  - Lip swelling [Unknown]
  - Drug hypersensitivity [Unknown]

NARRATIVE: CASE EVENT DATE: 2012
